FAERS Safety Report 9229005 (Version 10)
Quarter: 2013Q3

REPORT INFORMATION
  Report Type: Report from Study
  Country: FR (occurrence: FR)
  Receive Date: 20130412
  Receipt Date: 20130808
  Transmission Date: 20140515
  Serious: Yes (Other)
  Sender: FDA-Public Use
  Company Number: FR-VERTEX PHARMACEUTICALS INC.-2013-004394

PATIENT
  Sex: Male

DRUGS (4)
  1. TELAPREVIR [Suspect]
     Indication: HEPATITIS C
     Dosage: TABLET
     Route: 065
     Dates: end: 20130530
  2. RIBAVIRIN [Suspect]
     Indication: HEPATITIS C
     Dosage: DOSAGE FORM: UNKNOWN
     Route: 065
  3. PEG INTERFERON [Suspect]
     Indication: HEPATITIS C
     Dosage: DOSAGE FORM: UNKNOWN
     Route: 065
  4. ATARAX [Concomitant]
     Indication: PRURITUS
     Dosage: DOSAGE FORM: UNSPECIFIED
     Route: 065

REACTIONS (30)
  - Blood triglycerides increased [Recovered/Resolved]
  - Back pain [Unknown]
  - Eye movement disorder [Unknown]
  - Malaise [Unknown]
  - Somnolence [Unknown]
  - Migraine [Unknown]
  - Insomnia [Unknown]
  - Dizziness [Unknown]
  - Feeling abnormal [Unknown]
  - Anxiety [Unknown]
  - Pain [Unknown]
  - Acne [Unknown]
  - Chest discomfort [Unknown]
  - Bronchitis [Unknown]
  - Oropharyngeal pain [Unknown]
  - Dry throat [Unknown]
  - Nasal dryness [Unknown]
  - Bone pain [Unknown]
  - Night sweats [Unknown]
  - Cough [Unknown]
  - Feeling hot [Unknown]
  - Musculoskeletal pain [Unknown]
  - Influenza [Not Recovered/Not Resolved]
  - Myalgia [Unknown]
  - Dyspnoea [Unknown]
  - Paraesthesia [Unknown]
  - Fatigue [Not Recovered/Not Resolved]
  - Pruritus [Recovered/Resolved]
  - Skin reaction [Unknown]
  - Nausea [Unknown]
